FAERS Safety Report 10457068 (Version 1)
Quarter: 2014Q3

REPORT INFORMATION
  Report Type: Spontaneous
  Country: US (occurrence: None)
  Receive Date: 20140829
  Receipt Date: 20140829
  Transmission Date: 20150326
  Serious: Yes (Other)
  Sender: FDA-Public Use
  Company Number: 2013SCPR005818

PATIENT
  Age: 89 Year
  Sex: Female

DRUGS (2)
  1. MEGACE ES [Suspect]
     Active Substance: MEGESTROL ACETATE
     Indication: APPETITE DISORDER
     Route: 048
     Dates: end: 20130306
  2. AMLODIPINE [Concomitant]
     Active Substance: AMLODIPINE BESYLATE

REACTIONS (3)
  - Pulmonary embolism [None]
  - Vaginal haemorrhage [None]
  - Oedema peripheral [None]

NARRATIVE: CASE EVENT DATE: 2011
